FAERS Safety Report 18137607 (Version 2)
Quarter: 2020Q3

REPORT INFORMATION
  Report Type: Spontaneous
  Country: DE (occurrence: DE)
  Receive Date: 20200812
  Receipt Date: 20200925
  Transmission Date: 20201103
  Serious: Yes (Death)
  Sender: FDA-Public Use
  Company Number: DE-CELLTRION INC.-2020DE025069

PATIENT

DRUGS (4)
  1. PREDNISOLONE. [Suspect]
     Active Substance: PREDNISOLONE
     Indication: DIARRHOEA
     Dosage: 1 MG/KG
     Route: 048
  2. INFLIXIMAB (UNKNOWN) [Suspect]
     Active Substance: INFLIXIMAB
     Indication: DIARRHOEA
     Dosage: 5 MG/KG
  3. NIVOLUMAB [Suspect]
     Active Substance: NIVOLUMAB
     Indication: CUTANEOUS T-CELL LYMPHOMA
     Dosage: FIVE INFUSIONS OF NIVOLUMAB (2 MG/KG)
  4. NIVOLUMAB [Suspect]
     Active Substance: NIVOLUMAB
     Dosage: SEVEN INFUSIONS OF NIVOLUMAB

REACTIONS (6)
  - Off label use [Fatal]
  - Disease progression [Fatal]
  - Cutaneous T-cell lymphoma [Fatal]
  - Product use in unapproved indication [Fatal]
  - Drug effective for unapproved indication [Fatal]
  - Sepsis [Fatal]
